FAERS Safety Report 15450802 (Version 1)
Quarter: 2018Q4

REPORT INFORMATION
  Report Type: Report from Study
  Country: US (occurrence: US)
  Receive Date: 20181001
  Receipt Date: 20181001
  Transmission Date: 20190204
  Serious: No
  Sender: FDA-Public Use
  Company Number: PHEH2018US040295

PATIENT
  Age: 50 Year

DRUGS (1)
  1. GILENYA [Suspect]
     Active Substance: FINGOLIMOD HYDROCHLORIDE
     Indication: MULTIPLE SCLEROSIS
     Dosage: 0.5 MG, QD
     Route: 048
     Dates: start: 20180529

REACTIONS (4)
  - Blood pressure increased [Unknown]
  - Disturbance in attention [Unknown]
  - Migraine [Unknown]
  - Influenza like illness [Unknown]

NARRATIVE: CASE EVENT DATE: 201809
